FAERS Safety Report 12646197 (Version 2)
Quarter: 2016Q3

REPORT INFORMATION
  Report Type: Spontaneous
  Country: US (occurrence: US)
  Receive Date: 20160811
  Receipt Date: 20160819
  Transmission Date: 20161109
  Serious: Yes (Hospitalization, Other)
  Sender: FDA-Public Use
  Company Number: US-CELGENEUS-USA-2016081095

PATIENT
  Age: 63 Year
  Sex: Female
  Weight: 104.42 kg

DRUGS (1)
  1. REVLIMID [Suspect]
     Active Substance: LENALIDOMIDE
     Indication: PLASMA CELL MYELOMA
     Dosage: 10 MILLIGRAM
     Route: 048
     Dates: start: 20160725

REACTIONS (5)
  - Nasopharyngitis [Not Recovered/Not Resolved]
  - Pain in jaw [Not Recovered/Not Resolved]
  - Infection [Unknown]
  - Diarrhoea [Not Recovered/Not Resolved]
  - Limb discomfort [Not Recovered/Not Resolved]

NARRATIVE: CASE EVENT DATE: 2016
